FAERS Safety Report 21798293 (Version 5)
Quarter: 2024Q1

REPORT INFORMATION
  Report Type: Spontaneous
  Country: US (occurrence: US)
  Receive Date: 20221230
  Receipt Date: 20240216
  Transmission Date: 20240409
  Serious: No
  Sender: FDA-Public Use
  Company Number: US-GSK-US2022191955

PATIENT
  Sex: Female
  Weight: 65.77 kg

DRUGS (2)
  1. NUCALA [Suspect]
     Active Substance: MEPOLIZUMAB
     Indication: Product used for unknown indication
     Dosage: UNK, EVERY 6 WEEKS
  2. NUCALA [Suspect]
     Active Substance: MEPOLIZUMAB
     Indication: Product used for unknown indication
     Dosage: UNK
     Dates: start: 20231130

REACTIONS (4)
  - Asthma [Not Recovered/Not Resolved]
  - Nasopharyngitis [Unknown]
  - Product dose omission issue [Unknown]
  - Incorrect product administration duration [Unknown]
